FAERS Safety Report 21025988 (Version 2)
Quarter: 2022Q3

REPORT INFORMATION
  Report Type: Spontaneous
  Country: JP (occurrence: JP)
  Receive Date: 20220630
  Receipt Date: 20220728
  Transmission Date: 20221027
  Serious: Yes (Hospitalization, Other)
  Sender: FDA-Public Use
  Company Number: JP-BRISTOL-MYERS SQUIBB COMPANY-2022-020330

PATIENT
  Age: 7 Decade
  Sex: Male

DRUGS (7)
  1. YERVOY [Suspect]
     Active Substance: IPILIMUMAB
     Indication: Non-small cell lung cancer
     Route: 041
  2. OPDIVO [Suspect]
     Active Substance: NIVOLUMAB
     Indication: Non-small cell lung cancer
     Dosage: 360MG, EVERY 3 WEEKS
     Route: 041
     Dates: start: 20220216
  3. OPDIVO [Suspect]
     Active Substance: NIVOLUMAB
     Dosage: 360MG, EVERY 3 WEEKS
     Route: 041
  4. OPDIVO [Suspect]
     Active Substance: NIVOLUMAB
     Dosage: 360MG, EVERY 3 WEEKS
     Route: 041
  5. OPDIVO [Suspect]
     Active Substance: NIVOLUMAB
     Dosage: 240MG, EVERY 3 WEEKS
     Route: 041
  6. OPDIVO [Suspect]
     Active Substance: NIVOLUMAB
     Dosage: 240MG, EVERY 3 WEEKS
     Route: 041
  7. OPDIVO [Suspect]
     Active Substance: NIVOLUMAB
     Dosage: 240MG, EVERY 3 WEEKS
     Route: 041

REACTIONS (3)
  - Vascular pain [Unknown]
  - Interstitial lung disease [Recovered/Resolved]
  - Physical deconditioning [Recovered/Resolved]

NARRATIVE: CASE EVENT DATE: 20220406
